FAERS Safety Report 4493962-8 (Version None)
Quarter: 2004Q4

REPORT INFORMATION
  Report Type: 
  Country: None (occurrence: None)
  Receive Date: 20041103
  Receipt Date: 20041103
  Transmission Date: 20050328
  Serious: No
  Sender: FDA-Public Use
  Company Number: None

PATIENT
  Age: 79 Year
  Sex: Female

DRUGS (1)
  1. SECTRAL [Suspect]
     Indication: ARRHYTHMIA
     Dosage: 200 MG ONE DAILY

REACTIONS (1)
  - PHARMACEUTICAL PRODUCT COMPLAINT [None]
